FAERS Safety Report 11925289 (Version 1)
Quarter: 2016Q1

REPORT INFORMATION
  Report Type: Spontaneous
  Country: IN (occurrence: IN)
  Receive Date: 20160118
  Receipt Date: 20160118
  Transmission Date: 20160526
  Serious: Yes (Other)
  Sender: FDA-Public Use
  Company Number: IN-CORDEN PHARMA LATINA S.P.A.-IN-2016COR000002

PATIENT
  Age: 62 Year
  Sex: Female

DRUGS (1)
  1. ETOPOSIDE. [Suspect]
     Active Substance: ETOPOSIDE
     Indication: BREAST CANCER
     Dosage: UNK
     Dates: start: 2012

REACTIONS (1)
  - Acute myelomonocytic leukaemia [Unknown]

NARRATIVE: CASE EVENT DATE: 201402
